FAERS Safety Report 7643665-3 (Version None)
Quarter: 2011Q3

REPORT INFORMATION
  Report Type: 
  Country: None (occurrence: None)
  Receive Date: 20110729
  Receipt Date: 20110725
  Transmission Date: 20111222
  Serious: Yes (Death)
  Sender: FDA-Public Use
  Company Number: PHHY2011NL66923

PATIENT
  Sex: Female
  Weight: 100 kg

DRUGS (1)
  1. ALISKIREN [Suspect]
     Dosage: 1 DF, QD
     Dates: start: 20090901

REACTIONS (1)
  - CARDIAC FAILURE ACUTE [None]
